FAERS Safety Report 17857527 (Version 2)
Quarter: 2020Q2

REPORT INFORMATION
  Report Type: Spontaneous
  Country: US (occurrence: US)
  Receive Date: 20200604
  Receipt Date: 20200617
  Transmission Date: 20200714
  Serious: No
  Sender: FDA-Public Use
  Company Number: US-JNJFOC-20200520755

PATIENT
  Sex: Male
  Weight: 72.64 kg

DRUGS (1)
  1. MENS ROGAINE EXTRA STRENGTH [Suspect]
     Active Substance: MINOXIDIL
     Indication: ALOPECIA
     Dosage: HALF CAP OF FULL TWICE ADAY?LAST USED THE PRODUCT ON 01-MAY-2020
     Route: 061
     Dates: start: 20200201

REACTIONS (1)
  - Drug ineffective [Unknown]
